FAERS Safety Report 10196049 (Version 1)
Quarter: 2014Q2

REPORT INFORMATION
  Report Type: Spontaneous
  Country: US (occurrence: US)
  Receive Date: 20140527
  Receipt Date: 20140527
  Transmission Date: 20141212
  Serious: No
  Sender: FDA-Public Use
  Company Number: US-PFIZER INC-2014142708

PATIENT
  Sex: Female

DRUGS (2)
  1. LEVOXYL [Suspect]
     Indication: THYROID DISORDER
     Dosage: 88 UG, UNK
     Dates: end: 2013
  2. LEVOXYL [Suspect]
     Dosage: 75 UG, UNK
     Dates: start: 2014

REACTIONS (2)
  - Thyroid function test abnormal [Unknown]
  - Product quality issue [Unknown]
